FAERS Safety Report 9010945 (Version 2)
Quarter: 2013Q4

REPORT INFORMATION
  Report Type: Spontaneous
  Country: US (occurrence: US)
  Receive Date: 20130109
  Receipt Date: 20131119
  Transmission Date: 20140711
  Serious: Yes (Other)
  Sender: FDA-Public Use
  Company Number: US-ROCHE-1176719

PATIENT
  Sex: Male
  Weight: 75.36 kg

DRUGS (8)
  1. ACCUTANE [Suspect]
     Indication: ACNE
     Route: 048
     Dates: start: 20060212
  2. ACCUTANE [Suspect]
     Route: 048
     Dates: start: 200711, end: 200805
  3. ACCUTANE [Suspect]
     Route: 048
     Dates: start: 20101110
  4. SOTRET [Suspect]
     Indication: ACNE
     Dosage: 7 TIMES.
     Route: 065
     Dates: start: 20071030, end: 200805
  5. SOTRET [Suspect]
     Route: 065
     Dates: start: 20071126
  6. SOTRET [Suspect]
     Route: 065
     Dates: start: 20071228
  7. SOTRET [Suspect]
     Route: 065
     Dates: start: 20080212
  8. SOTRET [Suspect]
     Route: 065
     Dates: start: 20080313

REACTIONS (3)
  - Crohn^s disease [Unknown]
  - Injury [Unknown]
  - Irritable bowel syndrome [Unknown]
